FAERS Safety Report 5537853-X (Version None)
Quarter: 2007Q4

REPORT INFORMATION
  Report Type: 
  Country: None (occurrence: None)
  Receive Date: 20071207
  Receipt Date: 20071205
  Transmission Date: 20080405
  Serious: Yes (Hospitalization)
  Sender: FDA-Public Use
  Company Number: AU-BRISTOL-MYERS SQUIBB COMPANY-14004212

PATIENT
  Age: 20 Year
  Sex: Male

DRUGS (4)
  1. ABATACEPT [Suspect]
     Indication: CROHN'S DISEASE
     Dosage: ALSO TAKEN ON 02-JUL-07, 30-JUL-07 END DATE  16-JUL-07 AND 28-AUG-07 RESPECTIVELY.
     Route: 042
     Dates: start: 20070702, end: 20071023
  2. PREDNISONE TAB [Concomitant]
     Dates: start: 20070508
  3. SALOFALK [Concomitant]
     Dates: start: 20060622
  4. CIPRINOL [Concomitant]
     Dates: start: 20070401

REACTIONS (1)
  - SINUS TACHYCARDIA [None]
